FAERS Safety Report 6820930-0 (Version None)
Quarter: 2010Q3

REPORT INFORMATION
  Report Type: 
  Country: None (occurrence: None)
  Receive Date: 20100707
  Receipt Date: 20070821
  Transmission Date: 20110219
  Serious: Yes (Other)
  Sender: FDA-Public Use
  Company Number: US-PFIZER INC-2007069787

PATIENT
  Sex: Male
  Weight: 102.1 kg

DRUGS (4)
  1. ZOLOFT [Suspect]
     Indication: ANXIETY
     Dates: start: 20060101
  2. ZOLOFT [Interacting]
     Indication: OBSESSIVE-COMPULSIVE DISORDER
  3. LUVOX [Interacting]
     Indication: ANXIETY
     Dates: start: 20070601, end: 20070801
  4. LUVOX [Interacting]
     Indication: OBSESSIVE-COMPULSIVE DISORDER

REACTIONS (2)
  - DRUG INTERACTION [None]
  - MANIA [None]
